FAERS Safety Report 8305033-0 (Version None)
Quarter: 2012Q2

REPORT INFORMATION
  Report Type: 
  Country: None (occurrence: None)
  Receive Date: 20120423
  Receipt Date: 20120416
  Transmission Date: 20120825
  Serious: Yes (Other)
  Sender: FDA-Public Use
  Company Number: AR-ROCHE-1061383

PATIENT
  Sex: Female

DRUGS (2)
  1. LUCENTIS [Suspect]
     Indication: MACULOPATHY
     Route: 050
     Dates: start: 20111101
  2. LUCENTIS [Suspect]
     Route: 050
     Dates: start: 20120104

REACTIONS (2)
  - INTRAOCULAR PRESSURE INCREASED [None]
  - VOMITING [None]
